FAERS Safety Report 8968801 (Version 1)
Quarter: 2012Q4

REPORT INFORMATION
  Report Type: 
  Country: US (occurrence: US)
  Receive Date: 20121218
  Receipt Date: 20121218
  Transmission Date: 20130627
  Serious: No
  Sender: FDA-Public Use
  Company Number: US-BRISTOL-MYERS SQUIBB COMPANY-16355208

PATIENT
  Age: 4 None
  Sex: Female

DRUGS (3)
  1. ABILIFY [Suspect]
     Indication: DEPRESSION
  2. ABILIFY [Suspect]
     Indication: BIPOLAR DISORDER
  3. SEROQUEL [Concomitant]

REACTIONS (2)
  - Musculoskeletal stiffness [Unknown]
  - Muscle rigidity [Unknown]
